FAERS Safety Report 5231454-9 (Version None)
Quarter: 2007Q1

REPORT INFORMATION
  Report Type: 
  Country: None (occurrence: None)
  Receive Date: 20070206
  Receipt Date: 20070125
  Transmission Date: 20070707
  Serious: Yes (Other)
  Sender: FDA-Public Use
  Company Number: PHEH2007US01342

PATIENT
  Age: 67 Year
  Sex: Male

DRUGS (1)
  1. LOTREL [Suspect]
     Dosage: 10 MG/20 MG/ DAY
     Dates: start: 20060313

REACTIONS (2)
  - DIALYSIS [None]
  - RENAL FAILURE [None]
